FAERS Safety Report 17571532 (Version 1)
Quarter: 2020Q1

REPORT INFORMATION
  Report Type: Spontaneous
  Country: FR (occurrence: FR)
  Receive Date: 20200323
  Receipt Date: 20200323
  Transmission Date: 20200409
  Serious: Yes (Hospitalization)
  Sender: FDA-Public Use
  Company Number: NVSC2020FR078611

PATIENT
  Age: 10 Year
  Sex: Female
  Weight: 55.5 kg

DRUGS (1)
  1. OMNITROPE [Suspect]
     Active Substance: SOMATROPIN
     Indication: PRECOCIOUS PUBERTY
     Dosage: 1.9 MG (TOTAL)
     Route: 058
     Dates: start: 201905, end: 201910

REACTIONS (1)
  - Epiphysiolysis [Recovered/Resolved]

NARRATIVE: CASE EVENT DATE: 201908
